FAERS Safety Report 5451438-5 (Version None)
Quarter: 2007Q3

REPORT INFORMATION
  Report Type: 
  Country: None (occurrence: None)
  Receive Date: 20070913
  Receipt Date: 20070906
  Transmission Date: 20080115
  Serious: Yes (Hospitalization)
  Sender: FDA-Public Use
  Company Number: B0486895A

PATIENT
  Age: 74 Year
  Sex: Female

DRUGS (5)
  1. LAMICTAL [Suspect]
     Indication: PROPHYLAXIS
     Dosage: 25MG THREE TIMES PER DAY
     Route: 048
     Dates: start: 20070501, end: 20070801
  2. ERGENYL [Suspect]
     Indication: DRUG USE FOR UNKNOWN INDICATION
     Dosage: 300MG FIVE TIMES PER DAY
     Route: 048
  3. KEPPRA [Concomitant]
  4. COZAAR [Concomitant]
  5. NORVASC [Concomitant]

REACTIONS (7)
  - BALANCE DISORDER [None]
  - COORDINATION ABNORMAL [None]
  - DRUG INTERACTION [None]
  - EXTRAPYRAMIDAL DISORDER [None]
  - FALL [None]
  - INCONTINENCE [None]
  - PARKINSONISM [None]
